FAERS Safety Report 18134340 (Version 1)
Quarter: 2020Q3

REPORT INFORMATION
  Report Type: Spontaneous
  Country: US (occurrence: US)
  Receive Date: 20200810
  Receipt Date: 20200810
  Transmission Date: 20201103
  Serious: No
  Sender: FDA-Public Use
  Company Number: None

PATIENT
  Age: 63 Year
  Sex: Male

DRUGS (1)
  1. ADALIMUMAB (ADALIMUMAB 40MG/0.8ML INJ, SYRINGE, KIT) [Suspect]
     Active Substance: ADALIMUMAB
     Indication: RHEUMATOID ARTHRITIS
     Route: 058
     Dates: start: 20141220, end: 20200420

REACTIONS (1)
  - Injection site pain [None]

NARRATIVE: CASE EVENT DATE: 20200420
